FAERS Safety Report 6162421-9 (Version None)
Quarter: 2009Q2

REPORT INFORMATION
  Report Type: 
  Country: None (occurrence: None)
  Receive Date: 20090421
  Receipt Date: 20090420
  Transmission Date: 20091009
  Serious: Yes (Other)
  Sender: FDA-Public Use
  Company Number: JP-BAYER-200910951BYL

PATIENT
  Age: 71 Year
  Sex: Female

DRUGS (1)
  1. CIPROXAN-I.V. [Suspect]
     Indication: PNEUMONIA CHLAMYDIAL
     Dosage: TOTAL DAILY DOSE: 600 MG  UNIT DOSE: 300 MG
     Route: 041
     Dates: start: 20090318, end: 20090327

REACTIONS (4)
  - ERYTHEMA [None]
  - INJECTION SITE PAIN [None]
  - PLEURISY [None]
  - PRURITUS [None]
